FAERS Safety Report 15169606 (Version 2)
Quarter: 2018Q3

REPORT INFORMATION
  Report Type: Spontaneous
  Country: US (occurrence: US)
  Receive Date: 20180720
  Receipt Date: 20180823
  Transmission Date: 20181010
  Serious: Yes (Hospitalization, Other)
  Sender: FDA-Public Use
  Company Number: US-APOTEX-2018AP017255

PATIENT
  Age: 26 Year
  Sex: Male

DRUGS (3)
  1. FLUTICASONE PROPIONATE NASAL SPRAY USP [Suspect]
     Active Substance: FLUTICASONE PROPIONATE
     Indication: HYPERSENSITIVITY
     Dosage: UNK
     Route: 065
     Dates: start: 201804, end: 201805
  2. FLUTICASONE PROPIONATE NASAL SPRAY USP [Suspect]
     Active Substance: FLUTICASONE PROPIONATE
     Indication: NASAL CONGESTION
  3. FLUTICASONE PROPIONATE NASAL SPRAY USP [Suspect]
     Active Substance: FLUTICASONE PROPIONATE
     Indication: BRONCHITIS

REACTIONS (8)
  - Epistaxis [Recovered/Resolved]
  - Dyspnoea [Recovered/Resolved]
  - Nasal discomfort [Recovered/Resolved]
  - Loss of consciousness [Recovered/Resolved]
  - Pulmonary embolism [Recovered/Resolved]
  - Myocardial infarction [Recovered/Resolved]
  - Fatigue [Recovered/Resolved]
  - Drug ineffective [Unknown]

NARRATIVE: CASE EVENT DATE: 201705
